FAERS Safety Report 4460818-6 (Version None)
Quarter: 2004Q3

REPORT INFORMATION
  Report Type: 
  Country: None (occurrence: None)
  Receive Date: 20040923
  Receipt Date: 20040910
  Transmission Date: 20050211
  Serious: Yes (Hospitalization, Disabling)
  Sender: FDA-Public Use
  Company Number: 200209281

PATIENT
  Age: 24 Month
  Sex: Female
  Weight: 11 kg

DRUGS (2)
  1. BOTOX [Suspect]
     Indication: MUSCLE SPASTICITY
     Dosage: 100 UNITS PRN IM
     Route: 030
     Dates: start: 20011220, end: 20011220
  2. PHENOBARBITAL TAB [Concomitant]

REACTIONS (9)
  - ABASIA [None]
  - APHASIA [None]
  - CEREBROVASCULAR ACCIDENT [None]
  - CONVULSION [None]
  - DIFFICULTY IN WALKING [None]
  - ENCEPHALITIS [None]
  - HYPOGLYCAEMIA [None]
  - PSYCHOMOTOR SKILLS IMPAIRED [None]
  - STRIDOR [None]
